FAERS Safety Report 4743468-3 (Version None)
Quarter: 2005Q3

REPORT INFORMATION
  Report Type: 
  Country: None (occurrence: None)
  Receive Date: 20050809
  Receipt Date: 20050801
  Transmission Date: 20060218
  Serious: Yes (Life-Threatening, Hospitalization)
  Sender: FDA-Public Use
  Company Number: HQWYE660102AUG05

PATIENT
  Age: 76 Year
  Sex: Female

DRUGS (6)
  1. INDERAL [Suspect]
     Indication: ESSENTIAL TREMOR
     Dosage: 80 MG 1X PER 1 DAY, ORAL
     Route: 048
     Dates: start: 20050609, end: 20050615
  2. ARICEPT [Suspect]
     Indication: DEMENTIA ALZHEIMER'S TYPE
     Dosage: 10 MG 1X PER 1 DAY, ORAL
     Route: 048
     Dates: start: 20030901, end: 20050615
  3. LEXAPRO [Concomitant]
  4. PROCHLOPERAZINE (PROCHLORPERAZINE) [Concomitant]
  5. OMEPRAZOLE [Concomitant]
  6. FERROUS SULFATE TAB [Concomitant]

REACTIONS (2)
  - BRADYCARDIA [None]
  - TORSADE DE POINTES [None]
